FAERS Safety Report 15281279 (Version 1)
Quarter: 2018Q3

REPORT INFORMATION
  Report Type: Spontaneous
  Country: FR (occurrence: FR)
  Receive Date: 20180815
  Receipt Date: 20180815
  Transmission Date: 20181010
  Serious: Yes (Hospitalization)
  Sender: FDA-Public Use
  Company Number: FR-TEVA-2018-FR-940792

PATIENT
  Age: 70 Year
  Sex: Male
  Weight: 81 kg

DRUGS (19)
  1. LOVENOX [Concomitant]
     Active Substance: ENOXAPARIN SODIUM
     Route: 065
  2. JANUVIA [Concomitant]
     Active Substance: SITAGLIPTIN PHOSPHATE
     Route: 048
  3. UVEDOSE 100 000 UI, SOLUTION BUVABLE EN AMPOULE [Concomitant]
     Active Substance: CHOLECALCIFEROL
     Route: 048
  4. RAMIPRIL. [Concomitant]
     Active Substance: RAMIPRIL
     Route: 048
  5. METFORMINE [Concomitant]
     Active Substance: METFORMIN HYDROCHLORIDE
     Route: 048
  6. RIFAMPICINE [Concomitant]
     Active Substance: RIFAMPIN
     Indication: OSTEITIS
     Route: 048
     Dates: start: 201803
  7. BISOCE 5 MG, COMPRIM? PELLICUL? S?CABLE [Concomitant]
     Active Substance: BISOPROLOL
     Route: 048
  8. OFLOXACINE [Suspect]
     Active Substance: OFLOXACIN
     Indication: OSTEITIS
     Route: 048
     Dates: start: 201803
  9. KAYEXALATE [Concomitant]
     Active Substance: SODIUM POLYSTYRENE SULFONATE
     Route: 065
  10. IMOVANE [Concomitant]
     Active Substance: ZOPICLONE
     Route: 048
  11. LANSOPRAZOLE. [Concomitant]
     Active Substance: LANSOPRAZOLE
     Dosage: 15 MILLIGRAM DAILY;
     Route: 048
  12. DEXERYL, CR?ME EN TUBE [Concomitant]
     Route: 061
  13. AMLOR 10 MG, G?LULE [Concomitant]
     Active Substance: AMLODIPINE BESYLATE
     Route: 048
     Dates: end: 201804
  14. KARDEGIC [Concomitant]
     Active Substance: ASPIRIN DL-LYSINE
     Route: 048
  15. APIDRA [Concomitant]
     Active Substance: INSULIN GLULISINE
     Route: 065
  16. BACTRIM [Suspect]
     Active Substance: SULFAMETHOXAZOLE\TRIMETHOPRIM
     Indication: OSTEITIS
     Route: 048
     Dates: start: 20180323, end: 20180416
  17. BRILIQUE 90 MG, COMPRIM? PELLICUL? [Concomitant]
     Active Substance: TICAGRELOR
     Route: 048
  18. CODOLIPRANE [Concomitant]
     Active Substance: ACETAMINOPHEN\CODEINE PHOSPHATE
     Route: 048
  19. CRESTOR [Concomitant]
     Active Substance: ROSUVASTATIN CALCIUM
     Route: 048

REACTIONS (4)
  - Vomiting [Recovering/Resolving]
  - Acute kidney injury [Recovering/Resolving]
  - Hypoglycaemia [Recovering/Resolving]
  - Hypotension [Recovering/Resolving]

NARRATIVE: CASE EVENT DATE: 20180323
